FAERS Safety Report 20952025 (Version 1)
Quarter: 2022Q2

REPORT INFORMATION
  Report Type: Report from Study
  Country: US (occurrence: US)
  Receive Date: 20220613
  Receipt Date: 20220613
  Transmission Date: 20220721
  Serious: Yes (Other)
  Sender: FDA-Public Use
  Company Number: US-BAYER-2022A064485

PATIENT
  Age: 28 Year
  Sex: Male

DRUGS (3)
  1. STIVARGA [Suspect]
     Active Substance: REGORAFENIB
     Indication: Gastrointestinal stromal tumour
     Dosage: 80 MG, QD, 1ST WEEK (WITH LOW-FAT BREAKFAST)
     Route: 048
     Dates: start: 2020
  2. STIVARGA [Suspect]
     Active Substance: REGORAFENIB
     Indication: Metastases to liver
     Dosage: 40 MG, QD
  3. STIVARGA [Suspect]
     Active Substance: REGORAFENIB
     Indication: Metastases to biliary tract
     Dosage: 160 MG, QD
     Route: 048

REACTIONS (11)
  - Dehydration [Unknown]
  - Retching [Unknown]
  - Abdominal pain upper [Unknown]
  - Illness [None]
  - Nausea [Unknown]
  - Vomiting [None]
  - Pain in extremity [None]
  - Blister [None]
  - Blood potassium decreased [Unknown]
  - Decreased appetite [Unknown]
  - Off label use [None]
